FAERS Safety Report 19098599 (Version 11)
Quarter: 2022Q2

REPORT INFORMATION
  Report Type: Report from Study
  Country: AU (occurrence: AU)
  Receive Date: 20210406
  Receipt Date: 20220615
  Transmission Date: 20220721
  Serious: Yes (Death, Hospitalization, Disabling, Other)
  Sender: FDA-Public Use
  Company Number: AU-TAKEDA-2021TUS017368

PATIENT
  Age: 79 Year
  Sex: Male

DRUGS (40)
  1. TEDUGLUTIDE [Suspect]
     Active Substance: TEDUGLUTIDE
     Indication: Short-bowel syndrome
     Dosage: 1.5 MILLIGRAM, QD
     Route: 058
     Dates: start: 20201214
  2. TEDUGLUTIDE [Suspect]
     Active Substance: TEDUGLUTIDE
     Indication: Short-bowel syndrome
     Dosage: 1.5 MILLIGRAM, QD
     Route: 058
     Dates: start: 20201214
  3. TEDUGLUTIDE [Suspect]
     Active Substance: TEDUGLUTIDE
     Indication: Short-bowel syndrome
     Dosage: 1.5 MILLIGRAM, QD
     Route: 058
     Dates: start: 20201214
  4. TEDUGLUTIDE [Suspect]
     Active Substance: TEDUGLUTIDE
     Indication: Short-bowel syndrome
     Dosage: 1.5 MILLIGRAM, QD
     Route: 058
     Dates: start: 20201214
  5. TEDUGLUTIDE [Suspect]
     Active Substance: TEDUGLUTIDE
     Indication: Functional gastrointestinal disorder
     Dosage: 1.5 MILLIGRAM
     Route: 058
     Dates: start: 20210301
  6. TEDUGLUTIDE [Suspect]
     Active Substance: TEDUGLUTIDE
     Indication: Functional gastrointestinal disorder
     Dosage: 1.5 MILLIGRAM
     Route: 058
     Dates: start: 20210301
  7. TEDUGLUTIDE [Suspect]
     Active Substance: TEDUGLUTIDE
     Indication: Functional gastrointestinal disorder
     Dosage: 1.5 MILLIGRAM
     Route: 058
     Dates: start: 20210301
  8. TEDUGLUTIDE [Suspect]
     Active Substance: TEDUGLUTIDE
     Indication: Functional gastrointestinal disorder
     Dosage: 1.5 MILLIGRAM
     Route: 058
     Dates: start: 20210301
  9. TEDUGLUTIDE [Suspect]
     Active Substance: TEDUGLUTIDE
     Dosage: 0.15 MILLILITER, QD
     Route: 058
     Dates: start: 20210705
  10. TEDUGLUTIDE [Suspect]
     Active Substance: TEDUGLUTIDE
     Dosage: 0.15 MILLILITER, QD
     Route: 058
     Dates: start: 20210705
  11. TEDUGLUTIDE [Suspect]
     Active Substance: TEDUGLUTIDE
     Dosage: 0.15 MILLILITER, QD
     Route: 058
     Dates: start: 20210705
  12. TEDUGLUTIDE [Suspect]
     Active Substance: TEDUGLUTIDE
     Dosage: 0.15 MILLILITER, QD
     Route: 058
     Dates: start: 20210705
  13. TEDUGLUTIDE [Suspect]
     Active Substance: TEDUGLUTIDE
     Dosage: 0.15 MILLILITER, QD
     Route: 058
     Dates: start: 20210228
  14. TEDUGLUTIDE [Suspect]
     Active Substance: TEDUGLUTIDE
     Dosage: 0.15 MILLILITER, QD
     Route: 058
     Dates: start: 20210228
  15. TEDUGLUTIDE [Suspect]
     Active Substance: TEDUGLUTIDE
     Dosage: 0.15 MILLILITER, QD
     Route: 058
     Dates: start: 20210228
  16. TEDUGLUTIDE [Suspect]
     Active Substance: TEDUGLUTIDE
     Dosage: 0.15 MILLILITER, QD
     Route: 058
     Dates: start: 20210228
  17. TEDUGLUTIDE [Suspect]
     Active Substance: TEDUGLUTIDE
     Dosage: 0.15 MILLILITER, QD
     Route: 058
     Dates: start: 20211027, end: 20211119
  18. TEDUGLUTIDE [Suspect]
     Active Substance: TEDUGLUTIDE
     Dosage: 0.15 MILLILITER, QD
     Route: 058
     Dates: start: 20211027, end: 20211119
  19. TEDUGLUTIDE [Suspect]
     Active Substance: TEDUGLUTIDE
     Dosage: 0.15 MILLILITER, QD
     Route: 058
     Dates: start: 20211027, end: 20211119
  20. TEDUGLUTIDE [Suspect]
     Active Substance: TEDUGLUTIDE
     Dosage: 0.15 MILLILITER, QD
     Route: 058
     Dates: start: 20211027, end: 20211119
  21. TEDUGLUTIDE [Suspect]
     Active Substance: TEDUGLUTIDE
     Dosage: 0.15 MILLILITER, QD
     Route: 058
     Dates: start: 20210210
  22. TEDUGLUTIDE [Suspect]
     Active Substance: TEDUGLUTIDE
     Dosage: 0.15 MILLILITER, QD
     Route: 058
     Dates: start: 20210210
  23. TEDUGLUTIDE [Suspect]
     Active Substance: TEDUGLUTIDE
     Dosage: 0.15 MILLILITER, QD
     Route: 058
     Dates: start: 20210210
  24. TEDUGLUTIDE [Suspect]
     Active Substance: TEDUGLUTIDE
     Dosage: 0.15 MILLILITER, QD
     Route: 058
     Dates: start: 20210210
  25. TEDUGLUTIDE [Suspect]
     Active Substance: TEDUGLUTIDE
     Dosage: 0.15 MILLILITER, QD
     Route: 058
     Dates: start: 20210210, end: 20220209
  26. TEDUGLUTIDE [Suspect]
     Active Substance: TEDUGLUTIDE
     Dosage: 0.15 MILLILITER, QD
     Route: 058
     Dates: start: 20210210, end: 20220209
  27. TEDUGLUTIDE [Suspect]
     Active Substance: TEDUGLUTIDE
     Dosage: 0.15 MILLILITER, QD
     Route: 058
     Dates: start: 20210210, end: 20220209
  28. TEDUGLUTIDE [Suspect]
     Active Substance: TEDUGLUTIDE
     Dosage: 0.15 MILLILITER, QD
     Route: 058
     Dates: start: 20210210, end: 20220209
  29. TEDUGLUTIDE [Suspect]
     Active Substance: TEDUGLUTIDE
     Dosage: 2000 MILLIGRAM, QD
     Route: 065
  30. TEDUGLUTIDE [Suspect]
     Active Substance: TEDUGLUTIDE
     Dosage: 2000 MILLIGRAM, QD
     Route: 065
  31. TEDUGLUTIDE [Suspect]
     Active Substance: TEDUGLUTIDE
     Dosage: 2000 MILLIGRAM, QD
     Route: 065
  32. TEDUGLUTIDE [Suspect]
     Active Substance: TEDUGLUTIDE
     Dosage: 2000 MILLIGRAM, QD
     Route: 065
  33. TEDUGLUTIDE [Suspect]
     Active Substance: TEDUGLUTIDE
     Dosage: UNK
     Route: 058
     Dates: start: 20220517
  34. TEDUGLUTIDE [Suspect]
     Active Substance: TEDUGLUTIDE
     Dosage: UNK
     Route: 058
     Dates: start: 20220517
  35. TEDUGLUTIDE [Suspect]
     Active Substance: TEDUGLUTIDE
     Dosage: UNK
     Route: 058
     Dates: start: 20220517
  36. TEDUGLUTIDE [Suspect]
     Active Substance: TEDUGLUTIDE
     Dosage: UNK
     Route: 058
     Dates: start: 20220517
  37. TEDUGLUTIDE [Suspect]
     Active Substance: TEDUGLUTIDE
     Dosage: 0.15 MILLILITER, QD
     Route: 058
     Dates: start: 20210210, end: 20220210
  38. TEDUGLUTIDE [Suspect]
     Active Substance: TEDUGLUTIDE
     Dosage: 0.15 MILLILITER, QD
     Route: 058
     Dates: start: 20210210, end: 20220210
  39. TEDUGLUTIDE [Suspect]
     Active Substance: TEDUGLUTIDE
     Dosage: 0.15 MILLILITER, QD
     Route: 058
     Dates: start: 20210210, end: 20220210
  40. TEDUGLUTIDE [Suspect]
     Active Substance: TEDUGLUTIDE
     Dosage: 0.15 MILLILITER, QD
     Route: 058
     Dates: start: 20210210, end: 20220210

REACTIONS (21)
  - Death [Fatal]
  - Stoma site haemorrhage [Recovered/Resolved]
  - Cholecystitis [Recovered/Resolved]
  - Campylobacter infection [Recovered/Resolved]
  - Gastrointestinal haemorrhage [Recovered/Resolved]
  - Hepatic function abnormal [Not Recovered/Not Resolved]
  - Renal impairment [Not Recovered/Not Resolved]
  - Asthenia [Not Recovered/Not Resolved]
  - Gait inability [Not Recovered/Not Resolved]
  - Cholelithiasis [Not Recovered/Not Resolved]
  - Jaundice [Not Recovered/Not Resolved]
  - Dehydration [Recovering/Resolving]
  - Nausea [Recovering/Resolving]
  - Parenteral nutrition [Unknown]
  - Urine output increased [Unknown]
  - Stoma complication [Recovered/Resolved]
  - Fatigue [Recovered/Resolved]
  - Contusion [Recovered/Resolved]
  - Paraesthesia [Unknown]
  - Vomiting [Recovered/Resolved]
  - Decreased appetite [Unknown]

NARRATIVE: CASE EVENT DATE: 20210306
